FAERS Safety Report 6821229-9 (Version None)
Quarter: 2010Q3

REPORT INFORMATION
  Report Type: 
  Country: None (occurrence: None)
  Receive Date: 20100707
  Receipt Date: 20080510
  Transmission Date: 20110219
  Serious: No
  Sender: FDA-Public Use
  Company Number: US-PFIZER INC-2008025214

PATIENT
  Sex: Female

DRUGS (3)
  1. SERTRALINE [Suspect]
  2. ZOLPIDEM TARTRATE [Suspect]
     Route: 048
  3. CILEST [Concomitant]

REACTIONS (3)
  - ADVERSE DRUG REACTION [None]
  - COELIAC DISEASE [None]
  - MALAISE [None]
